FAERS Safety Report 23436385 (Version 1)
Quarter: 2024Q1

REPORT INFORMATION
  Report Type: Report from Study
  Country: AU (occurrence: AU)
  Receive Date: 20240124
  Receipt Date: 20240124
  Transmission Date: 20240410
  Serious: Yes (Other)
  Sender: FDA-Public Use
  Company Number: AU-JNJFOC-20240142656

PATIENT
  Age: 71 Year
  Sex: Female

DRUGS (1)
  1. REMICADE [Suspect]
     Active Substance: INFLIXIMAB
     Indication: Psoriasis
     Route: 041
     Dates: end: 202301

REACTIONS (1)
  - Breast cancer [Recovered/Resolved]

NARRATIVE: CASE EVENT DATE: 20230101
